FAERS Safety Report 16388626 (Version 2)
Quarter: 2019Q2

REPORT INFORMATION
  Report Type: Spontaneous
  Country: FR (occurrence: FR)
  Receive Date: 20190604
  Receipt Date: 20190610
  Transmission Date: 20190711
  Serious: Yes (Hospitalization)
  Sender: FDA-Public Use
  Company Number: FR-PFIZER INC-2019236926

PATIENT
  Age: 30 Year
  Sex: Female

DRUGS (4)
  1. AZATHIOPRINE. [Suspect]
     Active Substance: AZATHIOPRINE
     Indication: CROHN^S DISEASE
     Dosage: UNK
     Route: 048
     Dates: start: 201903
  2. INFLIXIMAB PFIZER [Suspect]
     Active Substance: INFLIXIMAB
     Dosage: 1 DF EVERY 15 DAYS
     Route: 042
     Dates: start: 20190514
  3. INFLIXIMAB PFIZER [Suspect]
     Active Substance: INFLIXIMAB
     Indication: CROHN^S DISEASE
     Dosage: 1 DF EVERY 15 DAYS
     Route: 042
     Dates: start: 20190430
  4. PREDNISOLONE. [Suspect]
     Active Substance: PREDNISOLONE
     Indication: CROHN^S DISEASE
     Dosage: 60 MG, UNK
     Route: 048
     Dates: start: 201903

REACTIONS (2)
  - Hepatocellular injury [Not Recovered/Not Resolved]
  - Hepatitis [Not Recovered/Not Resolved]

NARRATIVE: CASE EVENT DATE: 20190514
